FAERS Safety Report 17489087 (Version 1)
Quarter: 2020Q1

REPORT INFORMATION
  Report Type: Spontaneous
  Country: US (occurrence: US)
  Receive Date: 20200303
  Receipt Date: 20200303
  Transmission Date: 20200409
  Serious: No
  Sender: FDA-Public Use
  Company Number: US-PERRIGO-19US008254

PATIENT
  Sex: Male

DRUGS (1)
  1. NAPROXEN SODIUM. [Suspect]
     Active Substance: NAPROXEN SODIUM
     Indication: ARTHRALGIA
     Dosage: 220 MG, EVERY 8 TO 12 HOURS
     Route: 048
     Dates: start: 20190628, end: 20190630

REACTIONS (2)
  - Penis disorder [Not Recovered/Not Resolved]
  - Penile discharge [Not Recovered/Not Resolved]

NARRATIVE: CASE EVENT DATE: 201906
